FAERS Safety Report 23287411 (Version 3)
Quarter: 2024Q1

REPORT INFORMATION
  Report Type: Report from Study
  Country: CA (occurrence: CA)
  Receive Date: 20231212
  Receipt Date: 20240221
  Transmission Date: 20240409
  Serious: Yes (Other)
  Sender: FDA-Public Use
  Company Number: CA-BAYER-2023A175777

PATIENT
  Sex: Male

DRUGS (1)
  1. EYLEA [Suspect]
     Active Substance: AFLIBERCEPT
     Indication: Product used for unknown indication
     Dosage: UNK UNK, ONCE, 40MG/ML
     Dates: start: 20231125, end: 20231125

REACTIONS (2)
  - Loss of consciousness [Unknown]
  - Neurogenic shock [Unknown]

NARRATIVE: CASE EVENT DATE: 20231125
